FAERS Safety Report 24988089 (Version 1)
Quarter: 2025Q1

REPORT INFORMATION
  Report Type: Spontaneous
  Country: US (occurrence: US)
  Receive Date: 20250220
  Receipt Date: 20250220
  Transmission Date: 20250409
  Serious: No
  Sender: Kenvue
  Company Number: US-KENVUE-20250111241

PATIENT
  Sex: Female

DRUGS (2)
  1. MENS ROGAINE EXTRA STRENGTH [Suspect]
     Active Substance: MINOXIDIL
     Indication: Alopecia
     Route: 065
  2. MENS ROGAINE EXTRA STRENGTH [Suspect]
     Active Substance: MINOXIDIL
     Dosage: DROPPER FULL, ONCE A DAY
     Route: 065
     Dates: start: 202410

REACTIONS (4)
  - Vertigo [Unknown]
  - Dizziness [Unknown]
  - Product use issue [Unknown]
  - Intentional product misuse [Unknown]
